FAERS Safety Report 19129299 (Version 1)
Quarter: 2021Q2

REPORT INFORMATION
  Report Type: Spontaneous
  Country: US (occurrence: US)
  Receive Date: 20210413
  Receipt Date: 20210413
  Transmission Date: 20210717
  Serious: Yes (Death, Other)
  Sender: FDA-Public Use
  Company Number: US-GLAXOSMITHKLINE-US2021080466

PATIENT
  Age: 59 Year
  Sex: Male

DRUGS (1)
  1. ANORO ELLIPTA [Suspect]
     Active Substance: UMECLIDINIUM BROMIDE\VILANTEROL TRIFENATATE
     Indication: CHRONIC OBSTRUCTIVE PULMONARY DISEASE
     Dosage: UNK,  62.525MCG INH 60
     Route: 055
     Dates: start: 202006

REACTIONS (2)
  - Cardiac disorder [Unknown]
  - Death [Fatal]

NARRATIVE: CASE EVENT DATE: 20200810
